FAERS Safety Report 12059870 (Version 1)
Quarter: 2016Q1

REPORT INFORMATION
  Report Type: Spontaneous
  Country: US (occurrence: US)
  Receive Date: 20160210
  Receipt Date: 20160210
  Transmission Date: 20160526
  Serious: Yes (Hospitalization)
  Sender: FDA-Public Use
  Company Number: US-OTSUKA-2016_003159

PATIENT
  Sex: Male

DRUGS (1)
  1. DACOGEN [Suspect]
     Active Substance: DECITABINE
     Indication: MYELODYSPLASTIC SYNDROME
     Dosage: 20 MG/M2 FOR 5 DAYS FOR 6 CYCLES
     Route: 042
     Dates: start: 201310

REACTIONS (1)
  - Essential thrombocythaemia [Recovering/Resolving]
